FAERS Safety Report 7593741-9 (Version None)
Quarter: 2011Q3

REPORT INFORMATION
  Report Type: 
  Country: None (occurrence: None)
  Receive Date: 20110706
  Receipt Date: 20110623
  Transmission Date: 20111222
  Serious: Yes (Other)
  Sender: FDA-Public Use
  Company Number: FR-UCBSA-034704

PATIENT
  Sex: Female
  Weight: 56 kg

DRUGS (7)
  1. CIMZIA [Suspect]
     Indication: PSORIASIS
     Route: 058
     Dates: start: 20110401, end: 20110510
  2. PIROXICAM [Concomitant]
  3. OGASTORO [Concomitant]
     Dosage: 1 UNIT ONCE DAILY
  4. CIMZIA [Suspect]
     Indication: ANKYLOSING SPONDYLITIS
     Route: 058
     Dates: start: 20110401, end: 20110510
  5. CRESTOR [Concomitant]
  6. CLONAZEPAM [Concomitant]
     Dosage: 20 DROPS
  7. CYMBALTA [Concomitant]

REACTIONS (1)
  - ANKYLOSING SPONDYLITIS [None]
